FAERS Safety Report 9116378 (Version 1)
Quarter: 2013Q1

REPORT INFORMATION
  Report Type: Report from Study
  Country: US (occurrence: US)
  Receive Date: 20130225
  Receipt Date: 20130225
  Transmission Date: 20140127
  Serious: Yes (Death)
  Sender: FDA-Public Use
  Company Number: US-ACTELION-A-NJ2013-79207

PATIENT
  Age: 80 Year
  Sex: Female

DRUGS (6)
  1. TRACLEER [Suspect]
     Indication: PULMONARY ARTERIAL HYPERTENSION
     Dosage: 125 MG, BID
     Route: 048
     Dates: start: 20100422, end: 20130206
  2. REVATIO [Concomitant]
     Dosage: 20 MG, UNK
  3. LASIX [Concomitant]
     Dosage: 40 MG, UNK
  4. FOLIC ACID [Concomitant]
  5. DIGOXIN [Concomitant]
     Dosage: 0.125 UNK, UNK
  6. LEVOTHYROXINE [Concomitant]
     Dosage: 75 UNK, UNK

REACTIONS (5)
  - Myelodysplastic syndrome [Fatal]
  - Splenomegaly [Fatal]
  - Hepatomegaly [Fatal]
  - Concomitant disease progression [Fatal]
  - Dysphagia [Unknown]
